FAERS Safety Report 21885490 (Version 1)
Quarter: 2023Q1

REPORT INFORMATION
  Report Type: Spontaneous
  Country: DK (occurrence: DK)
  Receive Date: 20230119
  Receipt Date: 20230119
  Transmission Date: 20230417
  Serious: Yes (Hospitalization)
  Sender: FDA-Public Use
  Company Number: None

PATIENT

DRUGS (1)
  1. ONCASPAR [Suspect]
     Active Substance: PEGASPARGASE
     Indication: Acute lymphocytic leukaemia
     Dosage: STRENGTH: 750 E/MLDOSE: UNKNOWN
     Route: 065
     Dates: start: 20200508

REACTIONS (12)
  - Vomiting [Recovered/Resolved]
  - Superior sagittal sinus thrombosis [Recovered/Resolved with Sequelae]
  - Paraparesis [Unknown]
  - Balance disorder [Unknown]
  - Dizziness [Unknown]
  - Malaise [Recovered/Resolved]
  - Nausea [Unknown]
  - Feeling abnormal [Unknown]
  - Monoparesis [Unknown]
  - Headache [Recovered/Resolved]
  - Vision blurred [Recovered/Resolved]
  - Cerebral infarction [Recovered/Resolved]

NARRATIVE: CASE EVENT DATE: 20200501
